FAERS Safety Report 17142174 (Version 1)
Quarter: 2019Q4

REPORT INFORMATION
  Report Type: Spontaneous
  Country: FR (occurrence: FR)
  Receive Date: 20191211
  Receipt Date: 20191211
  Transmission Date: 20200122
  Serious: Yes (Other)
  Sender: FDA-Public Use
  Company Number: FR-MYLANLABS-2019M1107200

PATIENT
  Age: 74 Year
  Sex: Female
  Weight: 60.7 kg

DRUGS (9)
  1. OXYNORM [Suspect]
     Active Substance: OXYCODONE HYDROCHLORIDE
     Indication: FRACTURE PAIN
     Dosage: 2 MILLIGRAM
     Route: 042
     Dates: start: 20180927, end: 20180927
  2. CLOZAPINE. [Suspect]
     Active Substance: CLOZAPINE
     Indication: BEHAVIOUR DISORDER
     Dosage: 6.25 MILLIGRAM, QD
     Route: 048
     Dates: start: 20180927
  3. CHLORAMINOPHENE [Suspect]
     Active Substance: CHLORAMBUCIL
     Indication: LYMPHOMA
     Dosage: 4 MILLIGRAM, QD
     Route: 048
     Dates: start: 20180925, end: 20180930
  4. OXYCODONE MYLAN LP 10 MG, COMPRIM? PELLICUL? ? LIB?RATION PROLONG?E [Suspect]
     Active Substance: OXYCODONE
     Indication: PRODUCT USED FOR UNKNOWN INDICATION
     Dosage: 20 MILLIGRAM, QD
     Route: 048
     Dates: start: 20180929, end: 20181002
  5. MIDAZOLAM [Suspect]
     Active Substance: MIDAZOLAM HYDROCHLORIDE
     Indication: FRACTURE PAIN
     Dosage: 4 MILLIGRAM
     Route: 042
     Dates: start: 20180927, end: 20180927
  6. MORPHINE LAVOISIER [Suspect]
     Active Substance: MORPHINE HYDROCHLORIDE
     Indication: FRACTURE PAIN
     Dosage: 18 MILLIGRAM
     Route: 042
     Dates: start: 20180927, end: 20180927
  7. OXYNORM [Suspect]
     Active Substance: OXYCODONE HYDROCHLORIDE
     Indication: FRACTURE PAIN
     Dosage: 1 DOSAGE FORM
     Route: 048
     Dates: start: 20180927, end: 20180927
  8. ALLOPURINOL ARROW [Suspect]
     Active Substance: ALLOPURINOL
     Indication: PRODUCT USED FOR UNKNOWN INDICATION
     Dosage: 2 DOSAGE FORM, QD
     Route: 048
     Dates: start: 20180925, end: 20181002
  9. SERESTA [Suspect]
     Active Substance: OXAZEPAM
     Indication: AGITATION
     Dosage: 25 MILLIGRAM, QD
     Route: 048
     Dates: start: 20180922, end: 20181005

REACTIONS (2)
  - Coma [Recovered/Resolved]
  - Confusional state [Not Recovered/Not Resolved]

NARRATIVE: CASE EVENT DATE: 20180927
